FAERS Safety Report 9649687 (Version 1)
Quarter: 2013Q4

REPORT INFORMATION
  Report Type: Spontaneous
  Country: GB (occurrence: GB)
  Receive Date: 20131028
  Receipt Date: 20131028
  Transmission Date: 20140711
  Serious: Yes (Hospitalization)
  Sender: FDA-Public Use
  Company Number: PHHY2013GB118359

PATIENT
  Age: 67 Year
  Sex: Male

DRUGS (2)
  1. TAMSULOSIN HYDROCHLORIDE [Suspect]
     Indication: BLADDER OBSTRUCTION
     Dosage: 400 UG, UNK
     Dates: start: 201003
  2. CHEMOTHERAPEUTICS [Concomitant]

REACTIONS (1)
  - Transient ischaemic attack [Recovered/Resolved with Sequelae]
